FAERS Safety Report 9297825 (Version 1)
Quarter: 2013Q2

REPORT INFORMATION
  Report Type: Spontaneous
  Country: US (occurrence: US)
  Receive Date: 20130520
  Receipt Date: 20130520
  Transmission Date: 20140414
  Serious: Yes (Other)
  Sender: FDA-Public Use
  Company Number: US-BAYER-2013-060198

PATIENT
  Age: 31 Year
  Sex: Female
  Weight: 123.81 kg

DRUGS (17)
  1. BEYAZ [Suspect]
     Indication: ORAL CONTRACEPTION
  2. WELLBUTRIN [Concomitant]
     Dosage: 150 MG, UNK
     Route: 048
     Dates: start: 20111227
  3. AZITHROMYCIN [Concomitant]
     Indication: SINUSITIS
     Dosage: 250 MG, UNK
     Route: 048
     Dates: start: 20111227
  4. AZITHROMYCIN [Concomitant]
     Indication: SINUSITIS
     Dosage: UNK
     Dates: start: 20120208
  5. PROMETHAZINE [Concomitant]
     Dosage: 5 ML, UNK
     Route: 048
     Dates: start: 20120208
  6. NAPROSYN [Concomitant]
     Dosage: UNK
     Route: 048
     Dates: start: 20120223
  7. ANCEF [Concomitant]
     Dosage: 1 G, UNK
     Route: 042
     Dates: start: 20120227
  8. FENTANYL [Concomitant]
     Dosage: UNK
     Route: 042
     Dates: start: 20120227
  9. ZOFRAN [Concomitant]
     Dosage: UNK
     Route: 042
     Dates: start: 20120227
  10. PROPOFOL [Concomitant]
     Dosage: UNK
     Route: 042
     Dates: start: 20120227
  11. DILAUDID [Concomitant]
     Dosage: UNK
     Route: 042
     Dates: start: 20120227
  12. TYLENOL #3 [Concomitant]
     Dosage: UNK
     Route: 048
     Dates: start: 20120227
  13. CYCLOBENZAPRINE [Concomitant]
     Dosage: 5 MG, UNK
     Route: 048
     Dates: start: 20120227
  14. AFRIN SPRAY [Concomitant]
     Dosage: UNK
     Route: 045
     Dates: start: 20120227
  15. AMITIZA [Concomitant]
     Dosage: 24 MCG
     Route: 048
     Dates: start: 20120227
  16. OXYCODONE [Concomitant]
     Dosage: UNK
     Route: 048
     Dates: start: 20120305
  17. ALPRAZOLAM [Concomitant]

REACTIONS (1)
  - Thrombophlebitis superficial [None]
